FAERS Safety Report 6425517-X (Version None)
Quarter: 2009Q4

REPORT INFORMATION
  Report Type: 
  Country: None (occurrence: None)
  Receive Date: 20091029
  Receipt Date: 20050405
  Transmission Date: 20100525
  Serious: Yes (Hospitalization)
  Sender: FDA-Public Use
  Company Number: 2009011298

PATIENT
  Age: 43 Year
  Sex: Male
  Weight: 117.9352 kg

DRUGS (8)
  1. ACTIQ [Suspect]
     Indication: MUSCULOSKELETAL PAIN
     Dosage: 400 MCG, BU 1200 MCG (1200 MG, AS NEEDED) BU 213.3333 MCG (800 MCG, 8 IN 1 M) BU
     Route: 002
     Dates: end: 20050406
  2. ACTIQ [Suspect]
     Indication: MUSCULOSKELETAL PAIN
     Dosage: 400 MCG, BU 1200 MCG (1200 MG, AS NEEDED) BU 213.3333 MCG (800 MCG, 8 IN 1 M) BU
     Route: 002
     Dates: start: 20020101
  3. ACTIQ [Suspect]
     Indication: MUSCULOSKELETAL PAIN
     Dosage: 400 MCG, BU 1200 MCG (1200 MG, AS NEEDED) BU 213.3333 MCG (800 MCG, 8 IN 1 M) BU
     Route: 002
     Dates: start: 20050406
  4. OXYCONTIN [Concomitant]
  5. DEMEROL [Concomitant]
  6. FLEXERIL [Concomitant]
  7. ZOLOFT [Concomitant]
  8. TEMAZEPAM (TEMAZAPAM) [Concomitant]

REACTIONS (6)
  - CARTILAGE INJURY [None]
  - DRUG EFFECT DECREASED [None]
  - FALL [None]
  - INTERVERTEBRAL DISC PROTRUSION [None]
  - JOINT SPRAIN [None]
  - WRIST FRACTURE [None]
